FAERS Safety Report 15103904 (Version 1)
Quarter: 2018Q3

REPORT INFORMATION
  Report Type: Spontaneous
  Country: US (occurrence: US)
  Receive Date: 20180703
  Receipt Date: 20180703
  Transmission Date: 20181010
  Serious: Yes (Death, Other)
  Sender: FDA-Public Use
  Company Number: US-PFIZER INC-2018266109

PATIENT
  Age: 73 Year
  Sex: Male
  Weight: 104.33 kg

DRUGS (1)
  1. CAVERJECT [Suspect]
     Active Substance: ALPROSTADIL
     Indication: ERECTILE DYSFUNCTION
     Dosage: 40 MCG INJECTION PRIOR TO INTERCOURSE AS DIRECTED ONCE PER 24 HOURS
     Dates: start: 20110321

REACTIONS (1)
  - Death [Fatal]
